FAERS Safety Report 19796926 (Version 1)
Quarter: 2021Q3

REPORT INFORMATION
  Report Type: Spontaneous
  Country: US (occurrence: US)
  Receive Date: 20210907
  Receipt Date: 20210907
  Transmission Date: 20211014
  Serious: No
  Sender: FDA-Public Use
  Company Number: US-JNJFOC-20210904120

PATIENT
  Sex: Female

DRUGS (2)
  1. NEUTROGENA SKINID CLEANSER [Concomitant]
     Active Substance: SALICYLIC ACID
     Indication: PROPHYLAXIS
     Dosage: 1 PUMP ONCE A DAY
     Route: 061
     Dates: start: 20210808
  2. IBUPROFEN. [Suspect]
     Active Substance: IBUPROFEN
     Indication: SWELLING FACE
     Route: 065
     Dates: start: 202108

REACTIONS (1)
  - Product use in unapproved indication [Unknown]

NARRATIVE: CASE EVENT DATE: 202108
